FAERS Safety Report 6161341-3 (Version None)
Quarter: 2009Q2

REPORT INFORMATION
  Report Type: 
  Country: None (occurrence: None)
  Receive Date: 20090420
  Receipt Date: 20090420
  Transmission Date: 20091009
  Serious: No
  Sender: FDA-Public Use
  Company Number: None

PATIENT
  Age: 62 Year
  Sex: Male
  Weight: 92.7 kg

DRUGS (6)
  1. VARENICLINE [Suspect]
     Dosage: 1 MG BID PO
     Route: 048
     Dates: start: 20070306, end: 20080401
  2. LISINOPRIL AND HYDROCHLOROTHIAZIDE [Concomitant]
  3. OMEPRAZOLE [Concomitant]
  4. PROPRANOLOL [Concomitant]
  5. SULFADIAZINE SILVER TOPICAL CR 1% [Concomitant]
  6. TRAMADOL HCL [Concomitant]

REACTIONS (1)
  - ANGINA PECTORIS [None]
